FAERS Safety Report 12432109 (Version 1)
Quarter: 2016Q2

REPORT INFORMATION
  Report Type: Spontaneous
  Country: US (occurrence: US)
  Receive Date: 20160603
  Receipt Date: 20160603
  Transmission Date: 20160815
  Serious: No
  Sender: FDA-Public Use
  Company Number: US-THE MEDICINES COMPANY-US-MDCO-16-00073

PATIENT
  Age: 44 Year
  Sex: Female

DRUGS (5)
  1. ORBACTIV [Suspect]
     Active Substance: ORITAVANCIN
     Indication: STAPHYLOCOCCAL INFECTION
  2. ORBACTIV [Suspect]
     Active Substance: ORITAVANCIN
     Indication: BREAST CELLULITIS
     Route: 041
     Dates: start: 20160310
  3. CEFTAROLINE [Concomitant]
     Active Substance: CEFTAROLINE
     Indication: BREAST CELLULITIS
     Route: 042
     Dates: start: 20151208
  4. DAPTOMYCIN. [Concomitant]
     Active Substance: DAPTOMYCIN
     Indication: BREAST CELLULITIS
  5. MEROPENEM. [Concomitant]
     Active Substance: MEROPENEM
     Indication: BREAST CELLULITIS
     Route: 042
     Dates: start: 20160212

REACTIONS (5)
  - Myalgia [Recovered/Resolved]
  - Dizziness [Unknown]
  - Arthralgia [Recovered/Resolved]
  - Back pain [Recovered/Resolved]
  - Chills [Unknown]

NARRATIVE: CASE EVENT DATE: 20160310
